FAERS Safety Report 9164873 (Version 1)
Quarter: 2013Q1

REPORT INFORMATION
  Report Type: Spontaneous
  Country: US (occurrence: None)
  Receive Date: 20130226
  Receipt Date: 20130226
  Transmission Date: 20140127
  Serious: Yes (Other)
  Sender: FDA-Public Use
  Company Number: ACO_29874_2012

PATIENT
  Age: 62 Year
  Sex: Female

DRUGS (4)
  1. AMPYRA (DALFAMPRIDINE) TABLET, 10 MG [Suspect]
     Indication: GAIT DISTURBANCE
     Dosage: 10 MG. BID, ORAL 07/2010 TO ONGOING
     Route: 048
     Dates: start: 201007
  2. CELEBREX (CELECOXIB) [Concomitant]
  3. NEXIUM (ESOMEPRAZOLE MAGNESIUM) [Concomitant]
  4. FOLIC ACID (FOLIC ACID) [Concomitant]

REACTIONS (3)
  - Joint dislocation [None]
  - Ankle fracture [None]
  - Fall [None]
